FAERS Safety Report 11326943 (Version 1)
Quarter: 2015Q3

REPORT INFORMATION
  Report Type: Spontaneous
  Country: US (occurrence: None)
  Receive Date: 20150730
  Receipt Date: 20150730
  Transmission Date: 20151125
  Serious: No
  Sender: FDA-Public Use
  Company Number: None

PATIENT
  Age: 31 Year
  Sex: Female

DRUGS (1)
  1. CERDELGA [Suspect]
     Active Substance: ELIGLUSTAT
     Indication: GAUCHER^S DISEASE TYPE I
     Dosage: 84MG  TWICE A DAY PO
     Route: 048
     Dates: start: 20141217, end: 20150729

REACTIONS (2)
  - Maternal exposure during pregnancy [None]
  - Therapy cessation [None]

NARRATIVE: CASE EVENT DATE: 20150729
